FAERS Safety Report 12548150 (Version 4)
Quarter: 2016Q3

REPORT INFORMATION
  Report Type: Report from Study
  Country: US (occurrence: US)
  Receive Date: 20160712
  Receipt Date: 20160921
  Transmission Date: 20161109
  Serious: Yes (Other)
  Sender: FDA-Public Use
  Company Number: US-009507513-1607USA003866

PATIENT
  Age: 77 Year
  Sex: Female

DRUGS (2)
  1. KEYTRUDA [Suspect]
     Active Substance: PEMBROLIZUMAB
     Indication: MESOTHELIOMA
     Dosage: 130 MG, ONCE
     Dates: start: 20160303, end: 20160303
  2. KEYTRUDA [Suspect]
     Active Substance: PEMBROLIZUMAB
     Dosage: 130 MG, ONCE
     Dates: start: 20160324, end: 20160324

REACTIONS (2)
  - Demyelinating polyneuropathy [Unknown]
  - Product use issue [Unknown]

NARRATIVE: CASE EVENT DATE: 2016
